FAERS Safety Report 7437990-9 (Version None)
Quarter: 2011Q2

REPORT INFORMATION
  Report Type: 
  Country: None (occurrence: None)
  Receive Date: 20110421
  Receipt Date: 20110421
  Transmission Date: 20111010
  Serious: Yes (Life-Threatening, Hospitalization)
  Sender: FDA-Public Use
  Company Number: None

PATIENT
  Age: 54 Year
  Sex: Male
  Weight: 105.69 kg

DRUGS (1)
  1. VARENICLINE [Suspect]
     Dosage: 1 MG BID PO
     Route: 048
     Dates: start: 20110309, end: 20110322

REACTIONS (8)
  - SUICIDE ATTEMPT [None]
  - LOSS OF CONSCIOUSNESS [None]
  - DRUG SCREEN POSITIVE [None]
  - SELF-MEDICATION [None]
  - ALCOHOL USE [None]
  - INTENTIONAL OVERDOSE [None]
  - INTENTIONAL DRUG MISUSE [None]
  - AFFECT LABILITY [None]
